FAERS Safety Report 8291372-9 (Version None)
Quarter: 2012Q2

REPORT INFORMATION
  Report Type: 
  Country: None (occurrence: None)
  Receive Date: 20120417
  Receipt Date: 20120411
  Transmission Date: 20120825
  Serious: Yes (Hospitalization)
  Sender: FDA-Public Use
  Company Number: US-GLAXOSMITHKLINE-A0968464B

PATIENT
  Age: 65 Year
  Sex: Male

DRUGS (1)
  1. ELTROMBOPAG [Suspect]
     Indication: ACUTE MYELOID LEUKAEMIA
     Route: 048
     Dates: start: 20120130

REACTIONS (5)
  - PNEUMONIA FUNGAL [None]
  - FEBRILE NEUTROPENIA [None]
  - URINARY RETENTION [None]
  - CLOSTRIDIAL INFECTION [None]
  - PANCYTOPENIA [None]
